FAERS Safety Report 22726011 (Version 9)
Quarter: 2024Q2

REPORT INFORMATION
  Report Type: Report from Study
  Country: US (occurrence: US)
  Receive Date: 20230719
  Receipt Date: 20240621
  Transmission Date: 20240716
  Serious: Yes (Hospitalization, Other)
  Sender: FDA-Public Use
  Company Number: US-ACADIA PHARMACEUTICALS INC.-ACA-2023-TRF-002718

PATIENT
  Age: 24 Year
  Sex: Female

DRUGS (19)
  1. DAYBUE [Suspect]
     Active Substance: TROFINETIDE
     Indication: Rett syndrome
     Dosage: 20 MILLILITER, BID VIA G TUBE
     Dates: start: 20230621
  2. DAYBUE [Suspect]
     Active Substance: TROFINETIDE
     Dosage: 40 MILLILITER, BID, VIA G TUBE
     Dates: start: 20230630
  3. DAYBUE [Suspect]
     Active Substance: TROFINETIDE
     Dosage: 10 MILLILITER, BID
  4. DAYBUE [Suspect]
     Active Substance: TROFINETIDE
     Dosage: 20 MILLILITER, BID
  5. DAYBUE [Suspect]
     Active Substance: TROFINETIDE
     Dosage: 25 MILLILITER, BID
  6. DAYBUE [Suspect]
     Active Substance: TROFINETIDE
     Dosage: 40 MILLILITER, BID, VIA GTUBE
  7. LAMICTAL [Concomitant]
     Active Substance: LAMOTRIGINE
  8. EPIDIOLEX [Concomitant]
     Active Substance: CANNABIDIOL
  9. MELATONIN [Concomitant]
     Active Substance: MELATONIN
  10. DIPHENHYDRAMINE [Concomitant]
     Active Substance: DIPHENHYDRAMINE
  11. VITAMINS [Concomitant]
     Active Substance: VITAMINS
  12. CLONAZEPAM [Concomitant]
     Active Substance: CLONAZEPAM
  13. DIAZEPAM [Concomitant]
     Active Substance: DIAZEPAM
  14. GAS RELIEF [Concomitant]
     Active Substance: DIMETHICONE
  15. NORETHINDRONE [Concomitant]
     Active Substance: NORETHINDRONE
  16. BACLOFEN [Concomitant]
     Active Substance: BACLOFEN
  17. CRANBERRY [Concomitant]
     Active Substance: CRANBERRY
     Route: 048
  18. CULTURELLE [Concomitant]
     Active Substance: LACTOBACILLUS RHAMNOSUS
  19. SENNA [Concomitant]
     Active Substance: SENNA LEAF\SENNOSIDES\SENNOSIDES A AND B

REACTIONS (18)
  - Seizure like phenomena [Not Recovered/Not Resolved]
  - Pulmonary congestion [Not Recovered/Not Resolved]
  - Seizure [Not Recovered/Not Resolved]
  - Somnolence [Not Recovered/Not Resolved]
  - Prescribed underdose [Recovered/Resolved]
  - Cough [Not Recovered/Not Resolved]
  - Lethargy [Not Recovered/Not Resolved]
  - Prescribed underdose [Not Recovered/Not Resolved]
  - Gallbladder disorder [Not Recovered/Not Resolved]
  - Weight decreased [Not Recovered/Not Resolved]
  - Product dose omission issue [Unknown]
  - Complication associated with device [Unknown]
  - Diarrhoea [Not Recovered/Not Resolved]
  - Diarrhoea [Not Recovered/Not Resolved]
  - Diarrhoea [Recovering/Resolving]
  - Diarrhoea [Recovering/Resolving]
  - Diarrhoea [Not Recovered/Not Resolved]
  - Diarrhoea [Not Recovered/Not Resolved]

NARRATIVE: CASE EVENT DATE: 20230621
